FAERS Safety Report 20370377 (Version 1)
Quarter: 2022Q1

REPORT INFORMATION
  Report Type: Spontaneous
  Country: US (occurrence: None)
  Receive Date: 20220123
  Receipt Date: 20220123
  Transmission Date: 20220423
  Serious: Yes (Other)
  Sender: FDA-Public Use
  Company Number: None

PATIENT
  Age: 49 Year
  Sex: Female
  Weight: 66.6 kg

DRUGS (11)
  1. EFUDEX [Suspect]
     Active Substance: FLUOROURACIL
     Indication: Prophylactic chemotherapy
     Dosage: OTHER QUANTITY : 1 VERY THIN AMOUNT;?FREQUENCY : AT BEDTIME;?
     Route: 061
     Dates: start: 20220103, end: 20220121
  2. ARIMIDEX [Concomitant]
     Active Substance: ANASTROZOLE
  3. VITAMIN B [Concomitant]
     Active Substance: VITAMIN B
  4. VITAMIN C [Concomitant]
     Active Substance: ASCORBIC ACID
  5. VITAMIN D NOS [Concomitant]
     Active Substance: VITAMIN D NOS
  6. ZINC [Concomitant]
     Active Substance: ZINC
  7. IRON [Concomitant]
     Active Substance: IRON
  8. FISH OIL [Concomitant]
     Active Substance: FISH OIL
  9. CALCIUM [Concomitant]
     Active Substance: CALCIUM
  10. LOW-DOSE COMPOUNDED NALTREXONE [Concomitant]
  11. MELATONIN [Concomitant]
     Active Substance: MELATONIN

REACTIONS (5)
  - Infection [None]
  - Oropharyngeal pain [None]
  - Pyrexia [None]
  - Chills [None]
  - Fatigue [None]

NARRATIVE: CASE EVENT DATE: 20220120
